FAERS Safety Report 14452888 (Version 1)
Quarter: 2018Q1

REPORT INFORMATION
  Report Type: Spontaneous
  Country: US (occurrence: US)
  Receive Date: 20180129
  Receipt Date: 20180129
  Transmission Date: 20180509
  Serious: No
  Sender: FDA-Public Use
  Company Number: US-TEVA-791672USA

PATIENT
  Sex: Female

DRUGS (1)
  1. NADOLOL. [Suspect]
     Active Substance: NADOLOL
     Indication: HEART RATE INCREASED
     Dates: start: 2015

REACTIONS (3)
  - Erythema [Unknown]
  - Pruritus [Unknown]
  - Herpes zoster [Unknown]
